FAERS Safety Report 4878992-6 (Version None)
Quarter: 2006Q1

REPORT INFORMATION
  Report Type: 
  Country: None (occurrence: None)
  Receive Date: 20060112
  Receipt Date: 20050728
  Transmission Date: 20060701
  Serious: Yes (Hospitalization, Disabling)
  Sender: FDA-Public Use
  Company Number: US-MERCK-0508USA00810

PATIENT
  Age: 49 Year
  Sex: Male
  Weight: 114 kg

DRUGS (12)
  1. VIOXX [Suspect]
     Indication: ARTHRALGIA
     Route: 048
     Dates: start: 20040201, end: 20040916
  2. ZESTORETIC [Concomitant]
     Route: 065
  3. VICODIN [Concomitant]
     Route: 065
  4. LIPITOR [Concomitant]
     Route: 065
  5. LISINOPRIL [Concomitant]
     Route: 065
  6. TOPROL-XL [Concomitant]
     Route: 065
  7. PLAVIX [Concomitant]
     Route: 065
  8. PROTONIX [Concomitant]
     Route: 065
  9. ASPIRIN [Concomitant]
     Route: 065
  10. PENICILLIN (UNSPECIFIED) [Concomitant]
     Route: 065
  11. WELLBUTRIN [Concomitant]
     Route: 065
  12. EFFEXOR [Concomitant]
     Route: 065

REACTIONS (8)
  - CARDIAC DISORDER [None]
  - CARDIAC MURMUR [None]
  - CARPAL TUNNEL SYNDROME [None]
  - INTERVERTEBRAL DISC DEGENERATION [None]
  - MYOCARDIAL INFARCTION [None]
  - OSTEOARTHRITIS [None]
  - PAIN [None]
  - VERTIGO [None]
